FAERS Safety Report 12761013 (Version 1)
Quarter: 2016Q3

REPORT INFORMATION
  Report Type: Spontaneous
  Country: US (occurrence: US)
  Receive Date: 20160919
  Receipt Date: 20160919
  Transmission Date: 20161109
  Serious: Yes (Other)
  Sender: FDA-Public Use
  Company Number: US-ROCHE-1831682

PATIENT
  Sex: Male
  Weight: 93.52 kg

DRUGS (9)
  1. EPIPEN [Concomitant]
     Active Substance: EPINEPHRINE
  2. VIAGRA [Concomitant]
     Active Substance: SILDENAFIL CITRATE
  3. ASPIRIN. [Concomitant]
     Active Substance: ASPIRIN
     Route: 065
  4. FAMOTIDINE. [Concomitant]
     Active Substance: FAMOTIDINE
  5. FLONASE (UNITED STATES) [Concomitant]
  6. AMLODIPINE BESYLATE. [Concomitant]
     Active Substance: AMLODIPINE BESYLATE
     Route: 065
  7. PROAIR HFA [Concomitant]
     Active Substance: ALBUTEROL SULFATE
  8. PROBIOTIC (ENZYMES, INC) [Concomitant]
  9. XOLAIR [Suspect]
     Active Substance: OMALIZUMAB
     Indication: PRODUCT USED FOR UNKNOWN INDICATION
     Route: 065
     Dates: start: 2008

REACTIONS (2)
  - Gastrooesophageal reflux disease [Unknown]
  - Hepatitis C [Unknown]
